FAERS Safety Report 7744878-2 (Version None)
Quarter: 2011Q3

REPORT INFORMATION
  Report Type: 
  Country: None (occurrence: None)
  Receive Date: 20110912
  Receipt Date: 20110830
  Transmission Date: 20111222
  Serious: No
  Sender: FDA-Public Use
  Company Number: US-ELI_LILLY_AND_COMPANY-US201108009366

PATIENT
  Age: 45 Year
  Sex: Female

DRUGS (3)
  1. PROZAC [Suspect]
     Dosage: 100 MG, QD
  2. CYMBALTA [Suspect]
     Indication: MAJOR DEPRESSION
     Dosage: 120 MG, QD
  3. LAMICTAL [Concomitant]

REACTIONS (2)
  - TRANSAMINASES INCREASED [None]
  - OVERDOSE [None]
